FAERS Safety Report 25286937 (Version 1)
Quarter: 2025Q2

REPORT INFORMATION
  Report Type: Spontaneous
  Country: US (occurrence: US)
  Receive Date: 20250509
  Receipt Date: 20250509
  Transmission Date: 20250717
  Serious: No
  Sender: MISSION PHARMACAL COMPANY
  Company Number: US-Mission Pharmacal Company-2176432

PATIENT
  Age: 70 Year
  Sex: Male

DRUGS (2)
  1. POTASSIUM CITRATE [Suspect]
     Active Substance: POTASSIUM CITRATE
     Indication: Cystinuria
  2. THIOLA EC [Concomitant]
     Active Substance: TIOPRONIN
     Dates: start: 20180805

REACTIONS (1)
  - Drug ineffective [Unknown]
